FAERS Safety Report 16100186 (Version 1)
Quarter: 2019Q1

REPORT INFORMATION
  Report Type: Spontaneous
  Country: US (occurrence: US)
  Receive Date: 20190219
  Receipt Date: 20190219
  Transmission Date: 20190418
  Serious: Yes (Life-Threatening)
  Sender: FDA-Public Use
  Company Number: None

PATIENT
  Age: 52 Year
  Sex: Male

DRUGS (3)
  1. SUGAMMADEX [Suspect]
     Active Substance: SUGAMMADEX
     Indication: HEART RATE
     Route: 042
     Dates: start: 20190208, end: 20190208
  2. SUGAMMADEX [Suspect]
     Active Substance: SUGAMMADEX
     Indication: ANAESTHESIA
     Route: 042
     Dates: start: 20190208, end: 20190208
  3. SUGAMMADEX [Suspect]
     Active Substance: SUGAMMADEX
     Indication: ELECTROCARDIOGRAM
     Route: 042
     Dates: start: 20190208, end: 20190208

REACTIONS (3)
  - Tachycardia [None]
  - Pulse absent [None]
  - Ventricular tachycardia [None]

NARRATIVE: CASE EVENT DATE: 20190211
